FAERS Safety Report 10497241 (Version 2)
Quarter: 2014Q4

REPORT INFORMATION
  Report Type: Spontaneous
  Country: US (occurrence: US)
  Receive Date: 20141006
  Receipt Date: 20141006
  Transmission Date: 20150528
  Serious: No
  Sender: FDA-Public Use
  Company Number: US-DRREDDYS-USA/USA/13/0034543

PATIENT
  Age: 54 Year
  Sex: Female
  Weight: 59.02 kg

DRUGS (1)
  1. SUMATRIPTAN SUCCINATE TABLETS [Suspect]
     Active Substance: SUMATRIPTAN SUCCINATE
     Indication: MIGRAINE
     Route: 048
     Dates: start: 2013

REACTIONS (4)
  - Headache [Recovered/Resolved]
  - Abdominal pain upper [Unknown]
  - Vomiting [Recovered/Resolved]
  - Gait disturbance [Recovered/Resolved]

NARRATIVE: CASE EVENT DATE: 2013
